FAERS Safety Report 19457139 (Version 1)
Quarter: 2021Q2

REPORT INFORMATION
  Report Type: Other
  Country: US (occurrence: US)
  Receive Date: 20210624
  Receipt Date: 20210624
  Transmission Date: 20210717
  Serious: Yes (Other)
  Sender: FDA-Public Use
  Company Number: US-ROCHE-2501997

PATIENT
  Age: 69 Year
  Sex: Female
  Weight: 88.53 kg

DRUGS (5)
  1. DEXILANT [Concomitant]
     Active Substance: DEXLANSOPRAZOLE
     Indication: GASTROOESOPHAGEAL REFLUX DISEASE
     Route: 048
  2. VENTOLIN [Concomitant]
     Active Substance: ALBUTEROL SULFATE
     Indication: BRONCHITIS
     Dosage: 3 TO 4 TIMES A DAY ;ONGOING: YES
  3. PREDNISONE. [Concomitant]
     Active Substance: PREDNISONE
     Indication: BRONCHITIS
  4. OCREVUS [Suspect]
     Active Substance: OCRELIZUMAB
     Indication: RELAPSING MULTIPLE SCLEROSIS
     Dosage: DATE OF TREATMENT: 01/JUN/2017, 16/JUN/2017, 01/DEC/2017, 31/MAR/2018, 15/NOV/2018, 01/JUN/2019, 05/
     Route: 042
     Dates: start: 2017
  5. DEXILANT [Concomitant]
     Active Substance: DEXLANSOPRAZOLE
     Indication: BARRETT^S OESOPHAGUS

REACTIONS (16)
  - Intervertebral disc degeneration [Recovering/Resolving]
  - Pruritus [Not Recovered/Not Resolved]
  - Brain neoplasm [Unknown]
  - Intervertebral disc protrusion [Recovering/Resolving]
  - Herpes zoster [Unknown]
  - Gait inability [Recovering/Resolving]
  - Arthropathy [Recovered/Resolved]
  - Hepatitis [Unknown]
  - Spondylitis [Recovered/Resolved]
  - Alopecia [Not Recovered/Not Resolved]
  - Hernia [Not Recovered/Not Resolved]
  - Basal cell carcinoma [Not Recovered/Not Resolved]
  - Multiple sclerosis relapse [Recovered/Resolved]
  - Memory impairment [Not Recovered/Not Resolved]
  - Balance disorder [Not Recovered/Not Resolved]
  - Muscular weakness [Unknown]

NARRATIVE: CASE EVENT DATE: 201707
